FAERS Safety Report 10628791 (Version 1)
Quarter: 2014Q4

REPORT INFORMATION
  Report Type: Spontaneous
  Country: US (occurrence: US)
  Receive Date: 20141205
  Receipt Date: 20141205
  Transmission Date: 20150529
  Serious: No
  Sender: FDA-Public Use
  Company Number: US-BRISTOL-MYERS SQUIBB COMPANY-21330006

PATIENT
  Sex: Male

DRUGS (6)
  1. COUMADIN [Suspect]
     Active Substance: WARFARIN SODIUM
     Indication: COAGULOPATHY
     Dosage: INTERRUPTED MAR^06; RESTD OCT^06.?2861189B NOV^14 AND 2G6927A OCT^14.?5 MG 3D/WEEK QHS
     Dates: start: 200507, end: 201309
  2. POTASSIUM CITRATE. [Concomitant]
     Active Substance: POTASSIUM CITRATE
  3. WELCHOL [Concomitant]
     Active Substance: COLESEVELAM HYDROCHLORIDE
  4. ZETIA [Concomitant]
     Active Substance: EZETIMIBE
  5. FOLIC ACID. [Concomitant]
     Active Substance: FOLIC ACID
  6. ANDROGEL [Concomitant]
     Active Substance: TESTOSTERONE

REACTIONS (1)
  - International normalised ratio fluctuation [Unknown]

NARRATIVE: CASE EVENT DATE: 2013
